FAERS Safety Report 9518357 (Version 1)
Quarter: 2013Q3

REPORT INFORMATION
  Report Type: Spontaneous
  Country: US (occurrence: None)
  Receive Date: 20130910
  Receipt Date: 20130910
  Transmission Date: 20140515
  Serious: No
  Sender: FDA-Public Use
  Company Number: None

PATIENT
  Sex: Female

DRUGS (1)
  1. CODEINE SULFATE [Suspect]
     Dosage: 6 PILLS A DAY

REACTIONS (2)
  - Drug ineffective [None]
  - Ill-defined disorder [None]
